FAERS Safety Report 9258935 (Version 3)
Quarter: 2013Q4

REPORT INFORMATION
  Report Type: Spontaneous
  Country: IE (occurrence: IE)
  Receive Date: 20130426
  Receipt Date: 20131120
  Transmission Date: 20140711
  Serious: Yes (Congenital Anomaly)
  Sender: FDA-Public Use
  Company Number: IE-GLAXOSMITHKLINE-B0886200A

PATIENT
  Sex: Female

DRUGS (4)
  1. LAMOTRIGINE [Suspect]
     Indication: EPILEPSY
     Dosage: 50MG SEE DOSAGE TEXT
     Route: 064
     Dates: start: 2010
  2. DEXAMETHASONE [Concomitant]
     Route: 064
     Dates: start: 20121212
  3. METHYLDOPA [Concomitant]
     Indication: HYPERTENSION
     Dosage: 250MG VARIABLE DOSE
     Route: 064
     Dates: start: 20121123, end: 20130115
  4. NIFEDIPINE [Concomitant]
     Indication: HYPERTENSION
     Dosage: 20U TWICE PER DAY
     Route: 064
     Dates: start: 20121231, end: 20130115

REACTIONS (2)
  - Fallot^s tetralogy [Unknown]
  - Foetal exposure during pregnancy [Unknown]
